FAERS Safety Report 8282765-4 (Version None)
Quarter: 2012Q2

REPORT INFORMATION
  Report Type: 
  Country: None (occurrence: None)
  Receive Date: 20120413
  Receipt Date: 20120411
  Transmission Date: 20120825
  Serious: Yes (Other)
  Sender: FDA-Public Use
  Company Number: CH-PFIZER INC-2012090114

PATIENT
  Age: 64 Year
  Sex: Male

DRUGS (7)
  1. NEXIUM [Suspect]
     Dosage: 20 MG, 2X/DAY
     Route: 048
  2. NEORAL [Suspect]
     Dosage: 50 MG, 2X/DAY
     Route: 048
     Dates: start: 20070101
  3. COPEGUS [Suspect]
     Dosage: 400 MG, 2X/DAY
     Route: 048
     Dates: start: 20110601
  4. RECORMON [Suspect]
     Dosage: 10000 IU, WEEKLY
     Route: 058
     Dates: start: 20110101
  5. CALCIUM CARBONATE [Suspect]
     Dosage: UNK
     Route: 048
  6. PEGASYS [Suspect]
     Dosage: 180 UG, WEEKLY
     Route: 058
     Dates: start: 20110601
  7. NORVASC [Suspect]
     Dosage: UNK

REACTIONS (1)
  - SUDDEN HEARING LOSS [None]
